FAERS Safety Report 9080674 (Version 2)
Quarter: 2013Q1

REPORT INFORMATION
  Report Type: Spontaneous
  Country: IT (occurrence: IT)
  Receive Date: 20130218
  Receipt Date: 20130326
  Transmission Date: 20140127
  Serious: Yes (Hospitalization)
  Sender: FDA-Public Use
  Company Number: IT-BRISTOL-MYERS SQUIBB COMPANY-17362930

PATIENT
  Age: 91 Year
  Sex: Female
  Weight: 75 kg

DRUGS (7)
  1. COUMADIN TABS 5 MG [Suspect]
     Indication: ATRIAL FIBRILLATION
     Route: 048
     Dates: start: 20100101, end: 20121207
  2. CITALOPRAM [Concomitant]
  3. ESKIM [Concomitant]
     Dosage: TAB
     Route: 048
  4. LUVION [Concomitant]
     Dosage: 1DF:.5UNIT,TAB
     Route: 048
  5. APROVEL TABS 75 MG [Concomitant]
     Route: 048
  6. NOVONORM [Concomitant]
     Dosage: 1.0 MG TABLETS
     Route: 048
  7. LASIX [Concomitant]
     Dosage: 25 MG TABLETS
     Route: 048

REACTIONS (2)
  - Iron deficiency anaemia [Recovering/Resolving]
  - Gastritis [Recovering/Resolving]
